FAERS Safety Report 23831549 (Version 1)
Quarter: 2024Q2

REPORT INFORMATION
  Report Type: Spontaneous
  Country: US (occurrence: US)
  Receive Date: 20240508
  Receipt Date: 20240508
  Transmission Date: 20240716
  Serious: No
  Sender: FDA-Public Use
  Company Number: US-VERRICA PHARMACEUTICALS INC.-2024VER000015

PATIENT

DRUGS (1)
  1. YCANTH [Suspect]
     Active Substance: CANTHARIDIN
     Indication: Occupational exposure to product
     Dosage: SINGLE
     Route: 061

REACTIONS (1)
  - Product package associated injury [Unknown]

NARRATIVE: CASE EVENT DATE: 20240101
